FAERS Safety Report 9680808 (Version 11)
Quarter: 2017Q1

REPORT INFORMATION
  Report Type: Report from Study
  Country: MX (occurrence: MX)
  Receive Date: 20131111
  Receipt Date: 20170329
  Transmission Date: 20170429
  Serious: Yes (Hospitalization)
  Sender: FDA-Public Use
  Company Number: PHHY2013MX127427

PATIENT
  Age: 45 Year
  Sex: Female

DRUGS (4)
  1. TEGRETOL XR [Suspect]
     Active Substance: CARBAMAZEPINE
     Indication: PARTIAL SEIZURES
     Dosage: UNK
     Route: 065
  2. TEGRETOL XR [Suspect]
     Active Substance: CARBAMAZEPINE
     Indication: BIPOLAR DISORDER
     Dosage: 3 DF, QD
     Route: 065
     Dates: start: 201109
  3. TEGRETOL XR [Suspect]
     Active Substance: CARBAMAZEPINE
     Dosage: 4 DF, QD (200 MG)
     Route: 048
     Dates: start: 2012
  4. TEGRETOL XR [Suspect]
     Active Substance: CARBAMAZEPINE
     Indication: RESTLESSNESS
     Dosage: 3 DF, QD
     Route: 048
     Dates: start: 201207

REACTIONS (29)
  - Impaired self-care [Unknown]
  - Food allergy [Not Recovered/Not Resolved]
  - Cough [Not Recovered/Not Resolved]
  - Fatigue [Not Recovered/Not Resolved]
  - Bipolar disorder [Unknown]
  - Anxiety [Not Recovered/Not Resolved]
  - Emotional disorder [Unknown]
  - Tooth loss [Recovered/Resolved]
  - Influenza [Not Recovered/Not Resolved]
  - Product use issue [Not Recovered/Not Resolved]
  - Abnormal behaviour [Recovered/Resolved]
  - Anosmia [Not Recovered/Not Resolved]
  - Influenza [Recovered/Resolved]
  - Malaise [Not Recovered/Not Resolved]
  - Pain [Not Recovered/Not Resolved]
  - Hypersomnia [Not Recovered/Not Resolved]
  - Stress [Not Recovered/Not Resolved]
  - Spinal pain [Recovered/Resolved]
  - Depressed mood [Not Recovered/Not Resolved]
  - Feeling abnormal [Not Recovered/Not Resolved]
  - Dissociation [Unknown]
  - Hypophagia [Not Recovered/Not Resolved]
  - Accident [Recovered/Resolved]
  - Accident [Recovered/Resolved]
  - Arthritis [Not Recovered/Not Resolved]
  - Hyperphagia [Not Recovered/Not Resolved]
  - Contusion [Recovered/Resolved]
  - Weight increased [Not Recovered/Not Resolved]
  - Deformity [Not Recovered/Not Resolved]

NARRATIVE: CASE EVENT DATE: 201109
